FAERS Safety Report 9226781 (Version 1)
Quarter: 2013Q2

REPORT INFORMATION
  Report Type: Spontaneous
  Country: PT (occurrence: None)
  Receive Date: 20130410
  Receipt Date: 20130410
  Transmission Date: 20140414
  Serious: Yes (Other)
  Sender: FDA-Public Use
  Company Number: FK201301054

PATIENT
  Age: 70 Year
  Sex: Female

DRUGS (5)
  1. CALCIUM GLUCONATE [Suspect]
     Indication: MINERAL SUPPLEMENTATION
     Route: 042
  2. CALCIUM CARBONATE [Concomitant]
  3. CALCITRIOL (CALCITRIOL) [Concomitant]
  4. ANALGESIC THERAPY [Concomitant]
  5. ANTIBIOTIC THERAPY [Concomitant]

REACTIONS (2)
  - Calciphylaxis [None]
  - Extravasation [None]
